FAERS Safety Report 12554588 (Version 3)
Quarter: 2016Q3

REPORT INFORMATION
  Report Type: Report from Study
  Country: US (occurrence: US)
  Receive Date: 20160713
  Receipt Date: 20160920
  Transmission Date: 20161109
  Serious: Yes (Hospitalization)
  Sender: FDA-Public Use
  Company Number: PHEH2016US017079

PATIENT
  Age: 42 Year
  Sex: Male
  Weight: 61.7 kg

DRUGS (7)
  1. PROVENTIL [Concomitant]
     Active Substance: ALBUTEROL
     Indication: CYSTIC FIBROSIS
     Dosage: 2 OT, PRN (2 PUFF, Q40, PRN)
     Route: 048
  2. PULMOZYME [Concomitant]
     Active Substance: DORNASE ALFA
     Indication: CYSTIC FIBROSIS
     Dosage: 2.5 MG, BID (NEBULIZED)
     Route: 065
  3. TOBI PODHALER [Suspect]
     Active Substance: TOBRAMYCIN
     Indication: CYSTIC FIBROSIS LUNG
     Dosage: 1 DF (300 MG/ 5 ML), BID (NEBULIZER)
     Route: 055
     Dates: start: 201602
  4. DORNASE [Concomitant]
     Indication: CYSTIC FIBROSIS
     Dosage: NEBULIZER
     Route: 065
  5. ALBUTEROL. [Concomitant]
     Active Substance: ALBUTEROL
     Indication: CYSTIC FIBROSIS
     Dosage: 3 ML, BID (NEBULIZER)
     Route: 065
  6. ZENPEP [Concomitant]
     Active Substance: PANCRELIPASE AMYLASE\PANCRELIPASE LIPASE\PANCRELIPASE PROTEASE
     Indication: CYSTIC FIBROSIS
     Dosage: 3 WITH MEALS, 3 WITH NOON
     Route: 048
  7. TOBI PODHALER [Suspect]
     Active Substance: TOBRAMYCIN
     Dosage: 4 DF, BID (EVERY OTHER MONTH)
     Route: 048

REACTIONS (6)
  - Dyspnoea [Unknown]
  - Infection [Unknown]
  - Chest discomfort [Unknown]
  - Condition aggravated [Recovered/Resolved]
  - Cystic fibrosis [Recovered/Resolved]
  - Drug intolerance [Unknown]

NARRATIVE: CASE EVENT DATE: 20160215
